FAERS Safety Report 7371348-6 (Version None)
Quarter: 2011Q1

REPORT INFORMATION
  Report Type: 
  Country: None (occurrence: None)
  Receive Date: 20110324
  Receipt Date: 20110316
  Transmission Date: 20110831
  Serious: Yes (Death, Disabling, Other)
  Sender: FDA-Public Use
  Company Number: US-TEVA-272154USA

PATIENT
  Sex: Female

DRUGS (2)
  1. METOCLOPRAMIDE [Suspect]
     Dates: start: 20080601, end: 20080801
  2. METOCLOPRAMIDE [Suspect]

REACTIONS (6)
  - DYSKINESIA [None]
  - TREMOR [None]
  - ASTHENIA [None]
  - EXTRAPYRAMIDAL DISORDER [None]
  - ANXIETY [None]
  - ACTIVITIES OF DAILY LIVING IMPAIRED [None]
